FAERS Safety Report 26001712 (Version 1)
Quarter: 2025Q4

REPORT INFORMATION
  Report Type: Spontaneous
  Country: US (occurrence: US)
  Receive Date: 20251105
  Receipt Date: 20251105
  Transmission Date: 20260117
  Serious: No
  Sender: GALPHARM INTERNATIONAL
  Company Number: US-PERRIGO-25US001799

PATIENT

DRUGS (2)
  1. FAMOTIDINE [Suspect]
     Active Substance: FAMOTIDINE
     Indication: Burn oesophageal
     Dosage: UNKNOWN, UNKNOWN
     Route: 048
  2. FAMOTIDINE [Suspect]
     Active Substance: FAMOTIDINE
     Indication: Barrett^s oesophagus

REACTIONS (1)
  - Drug ineffective for unapproved indication [Unknown]
